FAERS Safety Report 21404389 (Version 2)
Quarter: 2022Q4

REPORT INFORMATION
  Report Type: Report from Study
  Country: CN (occurrence: CN)
  Receive Date: 20221003
  Receipt Date: 20221020
  Transmission Date: 20230113
  Serious: Yes (Other)
  Sender: FDA-Public Use
  Company Number: CN-BIOGEN-2022BI01157733

PATIENT
  Sex: Male
  Weight: 20 kg

DRUGS (5)
  1. SPINRAZA [Suspect]
     Active Substance: NUSINERSEN
     Indication: Spinal muscular atrophy
     Dosage: 1ST DOSE (LOADING DOSE)
     Route: 050
     Dates: start: 20220213
  2. SPINRAZA [Suspect]
     Active Substance: NUSINERSEN
     Dosage: 2ND DOSE (LOADING DOSE)
     Route: 050
     Dates: start: 20220227
  3. SPINRAZA [Suspect]
     Active Substance: NUSINERSEN
     Dosage: 3RD DOSE (LOADING DOSE)
     Route: 050
     Dates: start: 20220313
  4. SPINRAZA [Suspect]
     Active Substance: NUSINERSEN
     Dosage: 4TH DOSE (LOADING DOSE)
     Route: 050
     Dates: start: 20220417
  5. SPINRAZA [Suspect]
     Active Substance: NUSINERSEN
     Dosage: 5TH DOSE (MAINTENANCE DOSE)
     Route: 050
     Dates: start: 20220816

REACTIONS (3)
  - Anaphylactic reaction [Recovered/Resolved]
  - Liver function test increased [Recovered/Resolved]
  - Myocardial necrosis marker increased [Recovered/Resolved]

NARRATIVE: CASE EVENT DATE: 20220101
